FAERS Safety Report 13880207 (Version 2)
Quarter: 2017Q4

REPORT INFORMATION
  Report Type: Spontaneous
  Country: US (occurrence: US)
  Receive Date: 20170818
  Receipt Date: 20171201
  Transmission Date: 20180320
  Serious: No
  Sender: FDA-Public Use
  Company Number: US-TEVA-797154ACC

PATIENT
  Sex: Female

DRUGS (8)
  1. FUROSEMIDE. [Concomitant]
     Active Substance: FUROSEMIDE
  2. LISINOPRIL. [Concomitant]
     Active Substance: LISINOPRIL
  3. MAGNESIUM [Concomitant]
     Active Substance: MAGNESIUM
  4. CARVEDILOL. [Concomitant]
     Active Substance: CARVEDILOL
  5. PARAGARD T 380A [Suspect]
     Active Substance: COPPER
     Indication: CONTRACEPTION
  6. COUMADIN [Concomitant]
     Active Substance: WARFARIN SODIUM
  7. VITAMIN B COMPLEX [Concomitant]
     Active Substance: CYANOCOBALAMIN\DEXPANTHENOL\NIACINAMIDE\PYRIDOXINE HYDROCHLORIDE\RIBOFLAVIN 5^-PHOSPHATE SODIUM\THIAMINE HYDROCHLORIDE\VITAMIN B COMPLEX
  8. SPIRINOLACTONE [Concomitant]

REACTIONS (3)
  - Embedded device [Not Recovered/Not Resolved]
  - Device breakage [Unknown]
  - Device expulsion [Recovered/Resolved]
